FAERS Safety Report 7403679-5 (Version None)
Quarter: 2011Q2

REPORT INFORMATION
  Report Type: 
  Country: None (occurrence: None)
  Receive Date: 20110408
  Receipt Date: 20110328
  Transmission Date: 20111010
  Serious: Yes (Other)
  Sender: FDA-Public Use
  Company Number: PHHY2011US21482

PATIENT
  Sex: Female

DRUGS (4)
  1. MOTRIN [Concomitant]
  2. NSAID'S [Concomitant]
  3. EXJADE [Suspect]
     Indication: IRON OVERLOAD
     Dosage: 1250 MG, QD
     Route: 048
  4. FOLIC ACID [Concomitant]

REACTIONS (4)
  - JOINT SWELLING [None]
  - SICKLE CELL ANAEMIA WITH CRISIS [None]
  - HAEMOGLOBIN DECREASED [None]
  - ABDOMINAL PAIN UPPER [None]
